FAERS Safety Report 8798663 (Version 1)
Quarter: 2012Q4

REPORT INFORMATION
  Report Type: 
  Country: DE (occurrence: DE)
  Receive Date: 20120920
  Receipt Date: 20120920
  Transmission Date: 20130627
  Serious: Yes (Hospitalization, Other)
  Sender: FDA-Public Use
  Company Number: DE-AMGEN-DEUSP2012054610

PATIENT
  Age: 48 Year
  Sex: Male

DRUGS (2)
  1. ENBREL [Suspect]
     Indication: ANKYLOSING SPONDYLITIS
     Dosage: 50 mg, weekly
     Route: 058
     Dates: start: 20110111, end: 20120628
  2. ARICLAIM [Concomitant]
     Dosage: 60 mg, UNK

REACTIONS (2)
  - Ankylosing spondylitis [Unknown]
  - Drug ineffective [Recovered/Resolved]
